FAERS Safety Report 9695984 (Version 1)
Quarter: 2013Q4

REPORT INFORMATION
  Report Type: Report from Study
  Country: AR (occurrence: AR)
  Receive Date: 20131119
  Receipt Date: 20131119
  Transmission Date: 20140711
  Serious: Yes (Hospitalization)
  Sender: FDA-Public Use
  Company Number: AR-ROCHE-1305819

PATIENT
  Age: 78 Year
  Sex: Male

DRUGS (1)
  1. RANIBIZUMAB [Suspect]
     Indication: EYE INJURY
     Dosage: LAST DOSE RECEIVED IN OCT/2013.
     Route: 050
     Dates: start: 2013

REACTIONS (2)
  - Local swelling [Recovering/Resolving]
  - Arterial occlusive disease [Recovering/Resolving]
